FAERS Safety Report 5631127-4 (Version None)
Quarter: 2008Q1

REPORT INFORMATION
  Report Type: 
  Country: None (occurrence: None)
  Receive Date: 20080219
  Receipt Date: 20080212
  Transmission Date: 20080703
  Serious: Yes (Death, Other)
  Sender: FDA-Public Use
  Company Number: CA-BOEHRINGER INGELHEIM GMBH, GERMANY-2008-CN-00062CN

PATIENT
  Age: 52 Year
  Sex: Male

DRUGS (2)
  1. VIRAMUNE [Suspect]
     Indication: HIV TEST POSITIVE
  2. TRIZIVIR [Concomitant]
     Indication: HIV TEST POSITIVE

REACTIONS (4)
  - DEATH [None]
  - LYMPHOMA [None]
  - RENAL FAILURE [None]
  - URINARY RETENTION [None]
